FAERS Safety Report 9026473 (Version 2)
Quarter: 2013Q1

REPORT INFORMATION
  Report Type: Spontaneous
  Country: FR (occurrence: FR)
  Receive Date: 20130123
  Receipt Date: 20130213
  Transmission Date: 20140127
  Serious: Yes (Hospitalization)
  Sender: FDA-Public Use
  Company Number: FR-JNJFOC-20130108789

PATIENT
  Age: 27 Year
  Sex: Female
  Weight: 48 kg

DRUGS (2)
  1. XARELTO [Suspect]
     Indication: VENOUS THROMBOSIS LIMB
     Dosage: IN THE MORNING DURING LUNCH
     Route: 048
     Dates: start: 20130103, end: 20130108
  2. XARELTO [Suspect]
     Indication: DEEP VEIN THROMBOSIS
     Dosage: IN THE MORNING DURING LUNCH
     Route: 048
     Dates: start: 20130103, end: 20130108

REACTIONS (2)
  - Pulmonary embolism [Not Recovered/Not Resolved]
  - Drug ineffective [Unknown]
